FAERS Safety Report 8436840-1 (Version None)
Quarter: 2012Q2

REPORT INFORMATION
  Report Type: 
  Country: None (occurrence: None)
  Receive Date: 20120614
  Receipt Date: 20120606
  Transmission Date: 20120825
  Serious: Yes (Hospitalization)
  Sender: FDA-Public Use
  Company Number: DE-CELGENEUS-062-50794-12061060

PATIENT
  Sex: Female

DRUGS (2)
  1. VIDAZA [Suspect]
     Route: 065
  2. VIDAZA [Suspect]
     Route: 065
     Dates: start: 20120501, end: 20120501

REACTIONS (1)
  - LUNG DISORDER [None]
